FAERS Safety Report 22188323 (Version 1)
Quarter: 2023Q2

REPORT INFORMATION
  Report Type: Spontaneous
  Country: US (occurrence: US)
  Receive Date: 20230408
  Receipt Date: 20230408
  Transmission Date: 20230722
  Serious: Yes (Other)
  Sender: FDA-Public Use
  Company Number: US-drreddys-SPO/USA/23/0163300

PATIENT
  Age: 16 Year
  Sex: Female

DRUGS (3)
  1. DEXAMETHASONE [Suspect]
     Active Substance: DEXAMETHASONE
     Indication: COVID-19 pneumonia
     Route: 042
  2. NITRIC OXIDE [Concomitant]
     Active Substance: NITRIC OXIDE
     Indication: COVID-19 pneumonia
  3. ANAKINRA [Concomitant]
     Active Substance: ANAKINRA
     Indication: COVID-19 pneumonia
     Route: 042

REACTIONS (3)
  - Hypertension [Unknown]
  - Hypertransaminasaemia [Unknown]
  - Product use in unapproved indication [Unknown]
